FAERS Safety Report 19812821 (Version 2)
Quarter: 2021Q3

REPORT INFORMATION
  Report Type: Report from Study
  Country: None (occurrence: US)
  Receive Date: 20210909
  Receipt Date: 20210914
  Transmission Date: 20211014
  Serious: Yes (Other)
  Sender: FDA-Public Use
  Company Number: US-ABBVIE-21K-163-4069577-00

PATIENT
  Age: 64 Year
  Sex: Female

DRUGS (14)
  1. GLUCOSAMINE [Concomitant]
     Active Substance: GLUCOSAMINE
     Indication: ARTHROPATHY
  2. OMEPRAZOLE. [Concomitant]
     Active Substance: OMEPRAZOLE
     Indication: GASTROOESOPHAGEAL REFLUX DISEASE
  3. DULOXETINE. [Concomitant]
     Active Substance: DULOXETINE
     Indication: BIPOLAR DISORDER
  4. TOPIRAMATE. [Concomitant]
     Active Substance: TOPIRAMATE
     Indication: MIGRAINE
  5. DOXEPIN [Concomitant]
     Active Substance: DOXEPIN
     Indication: BIPOLAR DISORDER
  6. CHONDROITIN [Concomitant]
     Active Substance: CHONDROITIN
     Indication: PRODUCT USED FOR UNKNOWN INDICATION
  7. MELOXICAM. [Concomitant]
     Active Substance: MELOXICAM
     Indication: ARTHRITIS
  8. ESTRADIOL. [Concomitant]
     Active Substance: ESTRADIOL
     Indication: HORMONE REPLACEMENT THERAPY
  9. MODERNA COVID?19 VACCINE [Concomitant]
     Active Substance: CX-024414
     Indication: COVID-19 IMMUNISATION
     Dosage: FIRST DOSE
     Route: 030
     Dates: start: 20210322, end: 20210322
  10. MODERNA COVID?19 VACCINE [Concomitant]
     Active Substance: CX-024414
     Dosage: SECOND DOSE
     Route: 030
     Dates: start: 20210419, end: 20210419
  11. SUMATRIPTAN. [Concomitant]
     Active Substance: SUMATRIPTAN
     Indication: MIGRAINE
  12. PROMETHAZINE [Concomitant]
     Active Substance: PROMETHAZINE HYDROCHLORIDE
     Indication: MIGRAINE
  13. HUMIRA [Suspect]
     Active Substance: ADALIMUMAB
     Indication: PSORIASIS
     Route: 058
     Dates: start: 2014
  14. QUETIAPINE. [Concomitant]
     Active Substance: QUETIAPINE
     Indication: ANXIETY DISORDER

REACTIONS (12)
  - Muscle strain [Not Recovered/Not Resolved]
  - Acrochordon [Not Recovered/Not Resolved]
  - Miliaria [Recovering/Resolving]
  - Overweight [Not Recovered/Not Resolved]
  - Chondropathy [Recovered/Resolved]
  - Ligament sprain [Not Recovered/Not Resolved]
  - Road traffic accident [Not Recovered/Not Resolved]
  - Dermal cyst [Not Recovered/Not Resolved]
  - Haematoma [Not Recovered/Not Resolved]
  - Contusion [Not Recovered/Not Resolved]
  - Ligament sprain [Recovering/Resolving]
  - Nail ridging [Not Recovered/Not Resolved]

NARRATIVE: CASE EVENT DATE: 2018
